FAERS Safety Report 5261627-0 (Version None)
Quarter: 2007Q1

REPORT INFORMATION
  Report Type: 
  Country: None (occurrence: None)
  Receive Date: 20061218
  Receipt Date: 20060725
  Transmission Date: 20070707
  Serious: No
  Sender: FDA-Public Use
  Company Number: US200607004650

PATIENT
  Age: 67 Year
  Sex: Male

DRUGS (1)
  1. CIALIS [Suspect]
     Indication: PROSTATECTOMY
     Dosage: 20 MG AS NEEDED

REACTIONS (3)
  - BACK PAIN [None]
  - MUSCLE SPASMS [None]
  - STOMACH DISCOMFORT [None]
